FAERS Safety Report 6259031-1 (Version None)
Quarter: 2009Q3

REPORT INFORMATION
  Report Type: 
  Country: None (occurrence: None)
  Receive Date: 20090707
  Receipt Date: 20090630
  Transmission Date: 20100115
  Serious: Yes (Other)
  Sender: FDA-Public Use
  Company Number: PHHY2009BR27089

PATIENT
  Sex: Female

DRUGS (4)
  1. ACLASTA [Suspect]
     Indication: OSTEOPOROSIS
     Dosage: UNK
     Route: 042
     Dates: start: 20080926
  2. METICORTEN [Concomitant]
     Indication: BRONCHITIS
     Dosage: 1 DF, QD
     Route: 048
     Dates: start: 19960101
  3. ATROVENT [Concomitant]
     Indication: BRONCHITIS
     Dosage: UNK
     Dates: start: 19960101
  4. BEROTEC [Concomitant]
     Indication: BRONCHITIS
     Dosage: UNK
     Dates: start: 19960101

REACTIONS (6)
  - BONE PAIN [None]
  - NECK PAIN [None]
  - NEURALGIA [None]
  - ORTHOSIS USER [None]
  - OSTEOARTHRITIS [None]
  - THROMBOSIS [None]
